FAERS Safety Report 6904231-8 (Version None)
Quarter: 2010Q3

REPORT INFORMATION
  Report Type: 
  Country: None (occurrence: None)
  Receive Date: 20100804
  Receipt Date: 20090408
  Transmission Date: 20110219
  Serious: No
  Sender: FDA-Public Use
  Company Number: US-PFIZER INC-2009172896

PATIENT
  Sex: Female

DRUGS (2)
  1. LYRICA [Suspect]
     Indication: FIBROMYALGIA
     Dosage: 75 MG, 2X/DAY
  2. DESVENLAFAXINE [Concomitant]
     Dosage: UNK

REACTIONS (1)
  - DEPRESSION [None]
